FAERS Safety Report 6236948-5 (Version None)
Quarter: 2009Q2

REPORT INFORMATION
  Report Type: 
  Country: None (occurrence: None)
  Receive Date: 20090619
  Receipt Date: 20090421
  Transmission Date: 20091009
  Serious: No
  Sender: FDA-Public Use
  Company Number: US-ASTRAZENECA-2009UW04946

PATIENT
  Sex: Female

DRUGS (3)
  1. SYMBICORT [Suspect]
     Indication: CHRONIC OBSTRUCTIVE PULMONARY DISEASE
     Dosage: 80/4.5 UG
     Route: 055
  2. SYMBICORT [Suspect]
     Dosage: 160/4.5 UG ONE INHALATION TWO TIMES A DAY
     Route: 055
     Dates: start: 20090221, end: 20090222
  3. SPIRIVA [Concomitant]

REACTIONS (1)
  - BRONCHOSPASM [None]
